FAERS Safety Report 6115131-8 (Version None)
Quarter: 2009Q1

REPORT INFORMATION
  Report Type: 
  Country: None (occurrence: None)
  Receive Date: 20090313
  Receipt Date: 20090305
  Transmission Date: 20090719
  Serious: Yes (Hospitalization)
  Sender: FDA-Public Use
  Company Number: CA-PFIZER INC-2008053554

PATIENT

DRUGS (2)
  1. BLINDED *PLACEBO [Suspect]
     Indication: MALIGNANT NEOPLASM OF ISLETS OF LANGERHANS
  2. BLINDED SUNITINIB MALATE [Suspect]
     Indication: MALIGNANT NEOPLASM OF ISLETS OF LANGERHANS

REACTIONS (1)
  - PLEURAL EFFUSION [None]
